FAERS Safety Report 17563436 (Version 1)
Quarter: 2020Q1

REPORT INFORMATION
  Report Type: Spontaneous
  Country: US (occurrence: US)
  Receive Date: 20200319
  Receipt Date: 20200319
  Transmission Date: 20200409
  Serious: No
  Sender: FDA-Public Use
  Company Number: US-CATALYST PHARMACEUTICALS, INC-2020CAT00048

PATIENT
  Sex: Male
  Weight: 90.7 kg

DRUGS (7)
  1. UNKNOWN DRUG THAT AFFECTS HIS LIVER [Concomitant]
  2. FIRDAPSE [Suspect]
     Active Substance: AMIFAMPRIDINE
     Indication: MYASTHENIC SYNDROME
     Dosage: 60 MG, 1X/DAY
     Route: 048
     Dates: start: 20200122
  3. UNKNOWN ARTHRITIS DRUG [Concomitant]
  4. GABAPENTIN. [Concomitant]
     Active Substance: GABAPENTIN
  5. METHOTREXATE. [Concomitant]
     Active Substance: METHOTREXATE
  6. FOLIC ACID. [Concomitant]
     Active Substance: FOLIC ACID
  7. FIRDAPSE [Suspect]
     Active Substance: AMIFAMPRIDINE
     Dosage: 20 MG, 3X/DAY
     Route: 048
     Dates: start: 20200122

REACTIONS (1)
  - Pain [Not Recovered/Not Resolved]
